FAERS Safety Report 25654486 (Version 2)
Quarter: 2025Q3

REPORT INFORMATION
  Report Type: Spontaneous
  Country: US (occurrence: US)
  Receive Date: 20250807
  Receipt Date: 20250821
  Transmission Date: 20251020
  Serious: No
  Sender: ROCHE
  Company Number: US-ROCHE-10000354778

PATIENT
  Sex: Female

DRUGS (2)
  1. ACTEMRA [Suspect]
     Active Substance: TOCILIZUMAB
     Indication: Arteritis
     Route: 058
     Dates: start: 202505
  2. ACTEMRA [Suspect]
     Active Substance: TOCILIZUMAB

REACTIONS (10)
  - Needle issue [Unknown]
  - Hyperhidrosis [Unknown]
  - Feeling hot [Unknown]
  - Pruritus [Unknown]
  - Paraesthesia [Unknown]
  - Fatigue [Unknown]
  - Gait disturbance [Unknown]
  - Pain in extremity [Unknown]
  - Alopecia [Unknown]
  - Erythema [Unknown]
